FAERS Safety Report 8000230-6 (Version None)
Quarter: 2011Q4

REPORT INFORMATION
  Report Type: 
  Country: None (occurrence: None)
  Receive Date: 20111220
  Receipt Date: 20111220
  Transmission Date: 20120403
  Serious: No
  Sender: FDA-Public Use
  Company Number: None

PATIENT
  Age: 42 Year
  Sex: Female

DRUGS (1)
  1. HENRY SCHEIN NATURAL ELEGANCE TOUCH-UP TOOTH WHITENER [Suspect]

REACTIONS (3)
  - TOOTH DISCOLOURATION [None]
  - PARAESTHESIA ORAL [None]
  - AGEUSIA [None]
